FAERS Safety Report 19801698 (Version 2)
Quarter: 2022Q4

REPORT INFORMATION
  Report Type: Spontaneous
  Country: US (occurrence: US)
  Receive Date: 20210908
  Receipt Date: 20221111
  Transmission Date: 20230113
  Serious: No
  Sender: FDA-Public Use
  Company Number: US-SA-SAC20210902001044

PATIENT
  Age: 27 Year
  Sex: Female

DRUGS (7)
  1. DUPIXENT [Suspect]
     Active Substance: DUPILUMAB
     Indication: Dermatitis atopic
     Dosage: 300 MG, QOW
     Route: 058
     Dates: start: 20200625
  2. DUPIXENT [Suspect]
     Active Substance: DUPILUMAB
     Indication: Neurodermatitis
  3. DUPIXENT [Suspect]
     Active Substance: DUPILUMAB
     Indication: Dermatitis
  4. CICLOPIROX [Concomitant]
     Active Substance: CICLOPIROX
  5. CLOBETASOL E [Concomitant]
  6. OMEPRAZOLE [Concomitant]
     Active Substance: OMEPRAZOLE
  7. TRIAMCINOLONE [Concomitant]
     Active Substance: TRIAMCINOLONE

REACTIONS (4)
  - Pain of skin [Unknown]
  - Dermatitis atopic [Recovered/Resolved]
  - Product dose omission issue [Recovered/Resolved]
  - Product use in unapproved indication [Unknown]

NARRATIVE: CASE EVENT DATE: 20210831
